FAERS Safety Report 5795965-X (Version None)
Quarter: 2008Q3

REPORT INFORMATION
  Report Type: 
  Country: None (occurrence: None)
  Receive Date: 20080701
  Receipt Date: 20080625
  Transmission Date: 20090109
  Serious: Yes (Death)
  Sender: FDA-Public Use
  Company Number: CA-JNJFOC-20080606594

PATIENT
  Age: 67 Year
  Sex: Male

DRUGS (4)
  1. FENTANYL [Suspect]
     Indication: DRUG USE FOR UNKNOWN INDICATION
     Route: 062
  2. DILAUDID [Suspect]
     Indication: DRUG USE FOR UNKNOWN INDICATION
     Route: 048
  3. LUPRON DEPOT-3 [Suspect]
     Indication: DRUG USE FOR UNKNOWN INDICATION
     Route: 030
  4. NARCOTIC ANALGESICS [Concomitant]

REACTIONS (6)
  - ASTHENIA [None]
  - DISORIENTATION [None]
  - METASTASES TO BONE [None]
  - METASTASIS [None]
  - PROSTATIC SPECIFIC ANTIGEN INCREASED [None]
  - STOMATITIS [None]
